FAERS Safety Report 7263974-X (Version None)
Quarter: 2011Q1

REPORT INFORMATION
  Report Type: 
  Country: None (occurrence: None)
  Receive Date: 20110130
  Receipt Date: 20101101
  Transmission Date: 20110831
  Serious: No
  Sender: FDA-Public Use
  Company Number: US-ABBOTT-10P-163-0682632-00

PATIENT
  Age: 28 Year
  Sex: Female

DRUGS (6)
  1. IRON [Concomitant]
     Indication: PRODUCT USED FOR UNKNOWN INDICATION
  2. HUMIRA [Suspect]
     Indication: CROHN'S DISEASE
     Dates: start: 20100801
  3. ASACOL [Concomitant]
     Indication: PRODUCT USED FOR UNKNOWN INDICATION
     Dosage: 1 IN THE AM AND 1 IN THE PM
  4. VITAMIN D [Concomitant]
     Indication: VITAMIN SUPPLEMENTATION
     Dosage: DAILY
  5. BIOTIN [Concomitant]
     Indication: VITAMIN SUPPLEMENTATION
     Dosage: DAILY
  6. COQ10 [Concomitant]
     Indication: PRODUCT USED FOR UNKNOWN INDICATION
     Dosage: DAILY

REACTIONS (2)
  - ASTHMA [None]
  - PALPITATIONS [None]
